FAERS Safety Report 21259435 (Version 3)
Quarter: 2022Q3

REPORT INFORMATION
  Report Type: Spontaneous
  Country: IT (occurrence: IT)
  Receive Date: 20220826
  Receipt Date: 20220926
  Transmission Date: 20221026
  Serious: Yes (Death, Hospitalization, Other)
  Sender: FDA-Public Use
  Company Number: IT-ABBVIE-22K-083-4516114-00

PATIENT
  Age: 76 Year
  Sex: Female

DRUGS (2)
  1. CARBIDOPA\LEVODOPA [Suspect]
     Active Substance: CARBIDOPA\LEVODOPA
     Indication: Parkinson^s disease
     Dosage: TOTAL DAILY DOSE (MG): 1520; PUMP SETTING: MD: 7+3; CR: 4,5 (14H); ED: 3
     Route: 050
     Dates: start: 20220606, end: 2022
  2. CARBIDOPA\LEVODOPA [Suspect]
     Active Substance: CARBIDOPA\LEVODOPA
     Dates: start: 2022, end: 20220829

REACTIONS (4)
  - Pancreatic enzymes increased [Fatal]
  - Bile duct cancer [Fatal]
  - Hepatitis B [Fatal]
  - Pleural effusion [Unknown]

NARRATIVE: CASE EVENT DATE: 20220801
